FAERS Safety Report 25492940 (Version 1)
Quarter: 2025Q2

REPORT INFORMATION
  Report Type: Spontaneous
  Country: US (occurrence: US)
  Receive Date: 20250630
  Receipt Date: 20250630
  Transmission Date: 20250716
  Serious: No
  Sender: UCB
  Company Number: US-UCBSA-2024057122

PATIENT
  Age: 40 Year
  Sex: Male

DRUGS (6)
  1. MIDAZOLAM [Suspect]
     Active Substance: MIDAZOLAM
     Indication: Sedation
  2. MIDAZOLAM [Suspect]
     Active Substance: MIDAZOLAM
     Indication: Off label use
  3. ETOMIDATE [Concomitant]
     Active Substance: ETOMIDATE
     Indication: Sedation
  4. ROCURONIUM [Concomitant]
     Active Substance: ROCURONIUM BROMIDE
     Indication: Sedation
  5. PROPOFOL [Concomitant]
     Active Substance: PROPOFOL
     Indication: Sedation
  6. FENTANYL [Concomitant]
     Active Substance: FENTANYL
     Indication: Sedation

REACTIONS (1)
  - No adverse event [Unknown]
